FAERS Safety Report 7493681-X (Version None)
Quarter: 2011Q2

REPORT INFORMATION
  Report Type: 
  Country: None (occurrence: None)
  Receive Date: 20110520
  Receipt Date: 20110512
  Transmission Date: 20111010
  Serious: Yes (Other)
  Sender: FDA-Public Use
  Company Number: JP-B.I. PHARMACEUTICALS,INC./RIDGEFIELD-2011-BP-10667NB

PATIENT
  Sex: Female

DRUGS (7)
  1. TELMISARTAN AND HYDROCHLOROTHIAZIDE [Suspect]
     Indication: HYPERTENSION
     Dosage: 1DF
     Route: 048
     Dates: start: 20101004, end: 20110302
  2. ROHYPNOL [Suspect]
     Indication: BEHAVIOURAL AND PSYCHIATRIC SYMPTOMS OF DEMENTIA
     Dosage: 1 MG
     Route: 048
     Dates: start: 20101004
  3. MICARDIS [Suspect]
     Indication: HYPERTENSION
     Dosage: 80 MG
     Route: 048
     Dates: start: 20110303
  4. ISOSORBIDE DINITRATE [Suspect]
     Indication: ANGINA PECTORIS
     Dosage: 40 MG
     Route: 048
     Dates: start: 20101004
  5. ALDACTONE [Suspect]
     Indication: ANGINA PECTORIS
     Dosage: 25 MG
     Route: 048
     Dates: start: 20101004, end: 20110120
  6. AMLODIPINE [Suspect]
     Indication: HYPERTENSION
     Dosage: 5 MG
     Route: 048
     Dates: start: 20101004
  7. GOREISAN [Suspect]
     Indication: OEDEMA PERIPHERAL
     Dosage: 7.5 MG
     Route: 048
     Dates: start: 20101004, end: 20110120

REACTIONS (2)
  - HYPOTENSION [None]
  - LOSS OF CONSCIOUSNESS [None]
